FAERS Safety Report 8525732-5 (Version None)
Quarter: 2012Q3

REPORT INFORMATION
  Report Type: 
  Country: None (occurrence: None)
  Receive Date: 20120720
  Receipt Date: 20120710
  Transmission Date: 20120928
  Serious: Yes (Hospitalization, Other)
  Sender: FDA-Public Use
  Company Number: US-009507513-1203USA03506

PATIENT

DRUGS (13)
  1. ENBREL [Concomitant]
     Dosage: 50 MG, QW
     Route: 048
  2. REMICADE [Concomitant]
     Route: 048
  3. FOSAMAX [Suspect]
     Indication: OSTEOPOROSIS
     Dosage: 70 MG, UNK
     Route: 048
     Dates: start: 20011001, end: 20080201
  4. OS-CAL (CALCIUM CARBONATE) [Concomitant]
     Indication: OSTEOPOROSIS
     Dosage: 500 MG, QD
     Route: 048
     Dates: start: 19920101, end: 20060101
  5. VITAMIN D (UNSPECIFIED) [Concomitant]
     Dosage: 400 IU, UNK
     Route: 048
  6. CYMBALTA [Concomitant]
     Route: 048
  7. METHOTREXATE SODIUM [Concomitant]
     Route: 048
  8. PRILOSEC [Concomitant]
     Dosage: UNK UNK, PRN
     Dates: start: 20000101, end: 20080101
  9. MK-9278 [Concomitant]
     Dosage: UNK UNK, QD
     Dates: start: 19950101, end: 20100101
  10. CYANOCOBALAMIN [Concomitant]
     Dosage: 1000 A?G, UNK
     Route: 048
  11. NYSTATIN [Concomitant]
     Dosage: 100000 U, UNK
  12. FOSAMAX [Suspect]
     Dosage: 70 MG, UNK
     Route: 048
     Dates: start: 20080301, end: 20100401
  13. METICORTEN [Concomitant]
     Dates: start: 19970101

REACTIONS (68)
  - PITYRIASIS ROSEA [None]
  - ANXIETY [None]
  - DERMATITIS [None]
  - CHOLELITHIASIS [None]
  - SCIATICA [None]
  - DRY EYE [None]
  - BENIGN NEOPLASM OF SKIN [None]
  - ADVERSE EVENT [None]
  - FATIGUE [None]
  - FAECES DISCOLOURED [None]
  - ASTHENIA [None]
  - ABDOMINAL DISTENSION [None]
  - GASTRITIS [None]
  - URGE INCONTINENCE [None]
  - CANDIDIASIS [None]
  - DRUG ADMINISTRATION ERROR [None]
  - INGROWING NAIL [None]
  - FRACTURE NONUNION [None]
  - SYNOVITIS [None]
  - CHEST PAIN [None]
  - CYSTITIS NONINFECTIVE [None]
  - LOW TURNOVER OSTEOPATHY [None]
  - HYPERTENSION [None]
  - TUBERCULIN TEST POSITIVE [None]
  - MYOSITIS [None]
  - CYSTITIS [None]
  - FOOT DEFORMITY [None]
  - PERIPHERAL VASCULAR DISORDER [None]
  - CYSTITIS INTERSTITIAL [None]
  - LIMB DISCOMFORT [None]
  - ARTHRALGIA [None]
  - INFLUENZA [None]
  - DRY SKIN [None]
  - BURSITIS [None]
  - DEPRESSION [None]
  - URINARY TRACT DISORDER [None]
  - LUMBAR RADICULOPATHY [None]
  - ANKLE FRACTURE [None]
  - URINARY TRACT INFECTION [None]
  - BILE DUCT STONE [None]
  - ABDOMINAL DISCOMFORT [None]
  - HAEMATOCHEZIA [None]
  - SPINAL DISORDER [None]
  - COLONIC POLYP [None]
  - DERMATITIS CONTACT [None]
  - SJOGREN'S SYNDROME [None]
  - OSTEOARTHRITIS [None]
  - DRUG INEFFECTIVE [None]
  - FEMUR FRACTURE [None]
  - PAIN [None]
  - ARTHROPATHY [None]
  - CONSTIPATION [None]
  - EYE MOVEMENT DISORDER [None]
  - HELICOBACTER INFECTION [None]
  - GASTROOESOPHAGEAL REFLUX DISEASE [None]
  - HAEMORRHOIDS [None]
  - ANAEMIA POSTOPERATIVE [None]
  - LIVER FUNCTION TEST ABNORMAL [None]
  - BREAKTHROUGH PAIN [None]
  - POSTMENOPAUSE [None]
  - BACK PAIN [None]
  - HEADACHE [None]
  - ERUCTATION [None]
  - NAUSEA [None]
  - RASH [None]
  - ABDOMINAL PAIN LOWER [None]
  - ROTATOR CUFF SYNDROME [None]
  - CHOLECYSTITIS [None]
